FAERS Safety Report 6076551-3 (Version None)
Quarter: 2009Q1

REPORT INFORMATION
  Report Type: 
  Country: None (occurrence: None)
  Receive Date: 20090213
  Receipt Date: 20090209
  Transmission Date: 20090719
  Serious: Yes (Other)
  Sender: FDA-Public Use
  Company Number: ES-BRISTOL-MYERS SQUIBB COMPANY-14480586

PATIENT
  Sex: Female
  Weight: 2 kg

DRUGS (2)
  1. NIFLUMIC ACID [Suspect]
     Dosage: 4 DOSAGE FORM= 4 DOSE OF 250MG
     Route: 064
  2. AMOXICILLIN [Suspect]
     Route: 064

REACTIONS (2)
  - DUCTUS ARTERIOSUS PREMATURE CLOSURE [None]
  - PULMONARY HYPERTENSION [None]
